FAERS Safety Report 23582728 (Version 1)
Quarter: 2024Q1

REPORT INFORMATION
  Report Type: Report from Study
  Country: CA (occurrence: CA)
  Receive Date: 20240229
  Receipt Date: 20240229
  Transmission Date: 20240410
  Serious: Yes (Other)
  Sender: FDA-Public Use
  Company Number: CA-ABBVIE-5653540

PATIENT
  Sex: Female

DRUGS (1)
  1. SKYRIZI [Suspect]
     Active Substance: RISANKIZUMAB-RZAA
     Indication: Psoriasis
     Dosage: FREQUENCY : AT WEEK 0,4 THEN Q12 WEEKS
     Route: 058
     Dates: start: 20230727

REACTIONS (4)
  - Leukaemia [Unknown]
  - Hepatic steatosis [Not Recovered/Not Resolved]
  - Serum ferritin decreased [Unknown]
  - Blood iron decreased [Unknown]
